FAERS Safety Report 21288767 (Version 1)
Quarter: 2022Q3

REPORT INFORMATION
  Report Type: Spontaneous
  Country: US (occurrence: US)
  Receive Date: 20220902
  Receipt Date: 20220902
  Transmission Date: 20221026
  Serious: No
  Sender: FDA-Public Use
  Company Number: US-ABBVIE-22K-163-4405202-00

PATIENT

DRUGS (1)
  1. RINVOQ [Suspect]
     Active Substance: UPADACITINIB
     Indication: Dermatitis atopic
     Route: 048
     Dates: start: 202204, end: 20220517

REACTIONS (3)
  - Drug ineffective [Not Recovered/Not Resolved]
  - Alopecia areata [Unknown]
  - Alopecia totalis [Unknown]

NARRATIVE: CASE EVENT DATE: 20220501
